FAERS Safety Report 4577446-4 (Version None)
Quarter: 2005Q1

REPORT INFORMATION
  Report Type: 
  Country: None (occurrence: None)
  Receive Date: 20050208
  Receipt Date: 20050121
  Transmission Date: 20050727
  Serious: Yes (Other)
  Sender: FDA-Public Use
  Company Number: B0365726A

PATIENT

DRUGS (6)
  1. ALKERAN [Suspect]
  2. CARMUSTINE [Suspect]
  3. CYCLOPHOSPHAMIDE [Suspect]
  4. CYTARABINE [Suspect]
  5. CETIRIZINE HCL [Concomitant]
  6. RANITIDINE HYDROCHLORIDE [Concomitant]

REACTIONS (2)
  - ANOREXIA [None]
  - THROMBOCYTOPENIA [None]
